FAERS Safety Report 8013617-2 (Version None)
Quarter: 2011Q4

REPORT INFORMATION
  Report Type: 
  Country: None (occurrence: None)
  Receive Date: 20111227
  Receipt Date: 20111227
  Transmission Date: 20120403
  Serious: Yes (Disabling)
  Sender: FDA-Public Use
  Company Number: None

PATIENT
  Sex: Female
  Weight: 49.8957 kg

DRUGS (1)
  1. CLONIDINE [Suspect]
     Indication: BLOOD PRESSURE
     Dosage: 0.1 TO 0.3 EVERY 12 HRS. MOUTH
     Route: 048
     Dates: start: 20090101, end: 20100101

REACTIONS (6)
  - VOMITING [None]
  - ALOPECIA [None]
  - WEIGHT DECREASED [None]
  - NAUSEA [None]
  - GASTROINTESTINAL DISORDER [None]
  - DRUG DEPENDENCE [None]
